FAERS Safety Report 23399659 (Version 2)
Quarter: 2024Q1

REPORT INFORMATION
  Report Type: Spontaneous
  Country: IT (occurrence: IT)
  Receive Date: 20240113
  Receipt Date: 20240302
  Transmission Date: 20240409
  Serious: Yes (Hospitalization)
  Sender: FDA-Public Use
  Company Number: IT-TEVA-VS-3134440

PATIENT
  Age: 55 Year
  Sex: Male

DRUGS (3)
  1. CLOZAPINE [Suspect]
     Active Substance: CLOZAPINE
     Indication: Schizophrenia
     Dosage: DOSE GRADUALLY TITRATED TO 500MG DAILY
     Route: 065
  2. LAMOTRIGINE [Suspect]
     Active Substance: LAMOTRIGINE
     Indication: Schizophrenia
     Route: 065
  3. ZUCLOPENTHIXOL DECANOATE [Suspect]
     Active Substance: ZUCLOPENTHIXOL DECANOATE
     Indication: Schizophrenia
     Route: 065

REACTIONS (3)
  - Hallucination, auditory [Recovering/Resolving]
  - Treatment noncompliance [Unknown]
  - Delusion [Recovering/Resolving]
